FAERS Safety Report 7627135-4 (Version None)
Quarter: 2011Q3

REPORT INFORMATION
  Report Type: 
  Country: None (occurrence: None)
  Receive Date: 20110714
  Receipt Date: 20110705
  Transmission Date: 20111222
  Serious: Yes (Hospitalization)
  Sender: FDA-Public Use
  Company Number: FK201101338

PATIENT
  Age: 58 Year
  Sex: Female

DRUGS (1)
  1. PACLITAXEL [Suspect]
     Indication: BREAST CANCER METASTATIC
     Dosage: 100 MG/M2, 1 WK, INTRAVENOUS
     Route: 042
     Dates: start: 20070801

REACTIONS (4)
  - SKIN FIBROSIS [None]
  - SCLERODERMA [None]
  - SKIN HYPERTROPHY [None]
  - OEDEMA [None]
